FAERS Safety Report 11861249 (Version 1)
Quarter: 2015Q4

REPORT INFORMATION
  Report Type: Spontaneous
  Country: US (occurrence: US)
  Receive Date: 20151222
  Receipt Date: 20151222
  Transmission Date: 20160305
  Serious: Yes (Hospitalization)
  Sender: FDA-Public Use
  Company Number: US-BIOGEN-2012BI063795

PATIENT
  Age: 50 Year
  Sex: Female

DRUGS (6)
  1. AVONEX [Suspect]
     Active Substance: INTERFERON BETA-1A
     Route: 030
     Dates: start: 2014
  2. AVONEX [Suspect]
     Active Substance: INTERFERON BETA-1A
     Route: 030
     Dates: start: 20120408
  3. AVONEX [Suspect]
     Active Substance: INTERFERON BETA-1A
     Route: 030
     Dates: start: 20050213, end: 20120401
  4. AVONEX [Suspect]
     Active Substance: INTERFERON BETA-1A
     Route: 030
     Dates: start: 20121120
  5. AVONEX [Suspect]
     Active Substance: INTERFERON BETA-1A
     Indication: MULTIPLE SCLEROSIS
     Route: 030
  6. AVONEX [Suspect]
     Active Substance: INTERFERON BETA-1A
     Route: 030
     Dates: start: 20040213

REACTIONS (17)
  - Brain oedema [Not Recovered/Not Resolved]
  - Panic reaction [Unknown]
  - Gait disturbance [Unknown]
  - Platelet count decreased [Unknown]
  - Musculoskeletal disorder [Recovered/Resolved]
  - Loss of control of legs [Recovered/Resolved]
  - Abasia [Recovered/Resolved]
  - Cough [Not Recovered/Not Resolved]
  - Procedural anxiety [Unknown]
  - Brain neoplasm malignant [Not Recovered/Not Resolved]
  - Intracranial pressure increased [Recovered/Resolved]
  - Dysgraphia [Not Recovered/Not Resolved]
  - Phobia [Recovered/Resolved]
  - Mobility decreased [Not Recovered/Not Resolved]
  - Central nervous system lesion [Not Recovered/Not Resolved]
  - Fear [Unknown]
  - Fall [Recovered/Resolved]

NARRATIVE: CASE EVENT DATE: 20050213
